FAERS Safety Report 9767804 (Version 1)
Quarter: 2013Q4

REPORT INFORMATION
  Report Type: Spontaneous
  Country: US (occurrence: None)
  Receive Date: 20131213
  Receipt Date: 20131213
  Transmission Date: 20140711
  Serious: Yes (Other)
  Sender: FDA-Public Use
  Company Number: 2013P1021791

PATIENT
  Age: 17 Year
  Sex: Female
  Weight: 38.7 kg

DRUGS (3)
  1. FUROSEMIDE [Suspect]
  2. TOBRAMYCIN [Suspect]
  3. TACROLIMUS [Suspect]

REACTIONS (3)
  - Renal failure acute [None]
  - Renal tubular necrosis [None]
  - Drug interaction [None]
